FAERS Safety Report 8485215-8 (Version None)
Quarter: 2012Q2

REPORT INFORMATION
  Report Type: 
  Country: None (occurrence: None)
  Receive Date: 20120627
  Receipt Date: 20120627
  Transmission Date: 20120825
  Serious: Yes (Hospitalization)
  Sender: FDA-Public Use
  Company Number: None

PATIENT
  Age: 59 Year
  Sex: Male
  Weight: 122.4712 kg

DRUGS (1)
  1. INCIVEK [Suspect]
     Dosage: 750 MG TID PO
     Route: 048
     Dates: start: 20120103, end: 20120225

REACTIONS (3)
  - OEDEMA PERIPHERAL [None]
  - ANAEMIA [None]
  - DYSPNOEA EXERTIONAL [None]
